FAERS Safety Report 6676174-9 (Version None)
Quarter: 2010Q2

REPORT INFORMATION
  Report Type: 
  Country: None (occurrence: None)
  Receive Date: 20100412
  Receipt Date: 20100331
  Transmission Date: 20101027
  Serious: Yes (Other)
  Sender: FDA-Public Use
  Company Number: JP-JNJFOC-20091003552

PATIENT
  Sex: Female
  Weight: 59 kg

DRUGS (14)
  1. DOXORUBICIN HCL [Suspect]
     Indication: OVARIAN CANCER RECURRENT
     Route: 042
  2. DOXORUBICIN HCL [Suspect]
     Route: 042
  3. DOXORUBICIN HCL [Suspect]
     Route: 042
  4. DOXORUBICIN HCL [Suspect]
     Route: 042
  5. DOXORUBICIN HCL [Suspect]
     Route: 042
  6. DOXORUBICIN HCL [Suspect]
     Route: 042
  7. FILGRASTIM [Suspect]
     Indication: NEUTROPHIL COUNT DECREASED
     Route: 050
     Dates: start: 20090717, end: 20090811
  8. FILGRASTIM [Suspect]
     Route: 050
     Dates: start: 20090717, end: 20090811
  9. AZUNOL [Concomitant]
     Indication: PROPHYLAXIS
     Route: 049
  10. DECADRON [Concomitant]
     Indication: PROPHYLAXIS
     Route: 042
  11. PYDOXAL [Concomitant]
     Indication: PROPHYLAXIS
     Route: 048
  12. ZOFRAN [Concomitant]
     Indication: PROPHYLAXIS
     Route: 048
  13. LIPITOR [Concomitant]
     Route: 048
  14. MAGNESIUM OXIDE [Concomitant]
     Route: 048

REACTIONS (1)
  - SUPRAVENTRICULAR TACHYCARDIA [None]
